FAERS Safety Report 19281478 (Version 3)
Quarter: 2022Q1

REPORT INFORMATION
  Report Type: Spontaneous
  Country: GB (occurrence: GB)
  Receive Date: 20210521
  Receipt Date: 20220214
  Transmission Date: 20220423
  Serious: Yes (Death, Congenital Anomaly, Other)
  Sender: FDA-Public Use
  Company Number: GB-MYLANLABS-2021M1026847

PATIENT
  Age: 8 Month
  Sex: Female
  Weight: 2.58 kg

DRUGS (7)
  1. TENOFOVIR DISOPROXIL [Suspect]
     Active Substance: TENOFOVIR DISOPROXIL
     Indication: HIV infection
     Dosage: 1 DOSAGE FORM (2ND TRIMESTER)
     Route: 064
     Dates: start: 20200801
  2. ABACAVIR\LAMIVUDINE [Suspect]
     Active Substance: ABACAVIR\LAMIVUDINE
     Indication: HIV infection
     Dosage: 1 DOSAGE FORM(1ST TRIMESTER)
     Route: 064
     Dates: start: 20200601, end: 20200801
  3. ATAZANAVIR [Suspect]
     Active Substance: ATAZANAVIR
     Indication: HIV infection
     Dosage: 1 DOSAGE FORM (1ST TRIMESTER)
     Route: 064
     Dates: start: 20200601, end: 20200801
  4. DESCOVY [Suspect]
     Active Substance: EMTRICITABINE\TENOFOVIR ALAFENAMIDE FUMARATE
     Indication: HIV infection
     Dosage: 1 DOSAGE FORM (1ST TRIMESTER)
     Route: 064
     Dates: end: 20200601
  5. RALTEGRAVIR [Suspect]
     Active Substance: RALTEGRAVIR
     Indication: HIV infection
     Dosage: 1 DOSAGE FORM (1ST TRIMESTER)
     Route: 064
     Dates: start: 20200801
  6. RITONAVIR [Suspect]
     Active Substance: RITONAVIR
     Indication: HIV infection
     Dosage: 1 DOSAGE FORM  (RITONAVIR)
     Route: 064
     Dates: start: 20200601, end: 20200801
  7. EMTRICITABINE [Suspect]
     Active Substance: EMTRICITABINE
     Indication: HIV infection
     Dosage: 1 DOSAGE FORM
     Route: 064
     Dates: start: 20200801

REACTIONS (4)
  - Foetal death [Fatal]
  - Spina bifida [Fatal]
  - Hydrocephalus [Fatal]
  - Foetal exposure during pregnancy [Recovered/Resolved]
